FAERS Safety Report 11793349 (Version 1)
Quarter: 2015Q4

REPORT INFORMATION
  Report Type: Spontaneous
  Country: US (occurrence: None)
  Receive Date: 20151201
  Receipt Date: 20151201
  Transmission Date: 20160305
  Serious: Yes (Other)
  Sender: FDA-Public Use
  Company Number: None

PATIENT
  Age: 61 Year
  Sex: Male
  Weight: 51.4 kg

DRUGS (20)
  1. SEA SALT NOSE DROPS [Concomitant]
  2. DOXYCYCLINE. [Concomitant]
     Active Substance: DOXYCYCLINE
  3. FLUTICASONE [Concomitant]
     Active Substance: FLUTICASONE\FLUTICASONE PROPIONATE
  4. HYDRALAZINE [Concomitant]
     Active Substance: HYDRALAZINE HYDROCHLORIDE
  5. ECULIZUMAB [Suspect]
     Active Substance: ECULIZUMAB
     Indication: HAEMOLYTIC URAEMIC SYNDROME
     Dosage: INFUSION OVER 35 MINS WEEKLY INTRAVENOUS
     Route: 042
     Dates: start: 20151030, end: 20151130
  6. TACROLIMUS. [Concomitant]
     Active Substance: TACROLIMUS
  7. HEPARIN [Concomitant]
     Active Substance: HEPARIN SODIUM
  8. MYCOPHENOLATE [Concomitant]
     Active Substance: MYCOPHENOLIC ACID
  9. SODIUM BICARBONATE. [Concomitant]
     Active Substance: SODIUM BICARBONATE
  10. PREDNISONE. [Concomitant]
     Active Substance: PREDNISONE
  11. CEFEPIME [Concomitant]
     Active Substance: CEFEPIME HYDROCHLORIDE
  12. FLUDROCORTISONE [Concomitant]
     Active Substance: FLUDROCORTISONE
  13. PANTOPRAZOLE [Concomitant]
     Active Substance: PANTOPRAZOLE SODIUM
  14. PRAVASTATIN [Concomitant]
     Active Substance: PRAVASTATIN\PRAVASTATIN SODIUM
  15. VITAMIN B [Concomitant]
     Active Substance: VITAMIN B
  16. K PHOS [Concomitant]
  17. MAGNESIUM CHLORIDE. [Concomitant]
     Active Substance: MAGNESIUM CHLORIDE
  18. FOLIC ACID. [Concomitant]
     Active Substance: FOLIC ACID
  19. CALCIUM-VIT D [Concomitant]
  20. LABETALOL [Concomitant]
     Active Substance: LABETALOL\LABETALOL HYDROCHLORIDE

REACTIONS (5)
  - Lip oedema [None]
  - Speech disorder [None]
  - Salivary hypersecretion [None]
  - Swollen tongue [None]
  - Angioedema [None]

NARRATIVE: CASE EVENT DATE: 20151031
